FAERS Safety Report 5701771-4 (Version None)
Quarter: 2008Q2

REPORT INFORMATION
  Report Type: 
  Country: None (occurrence: None)
  Receive Date: 20080410
  Receipt Date: 20080410
  Transmission Date: 20081010
  Serious: No
  Sender: FDA-Public Use
  Company Number: None

PATIENT
  Sex: Male
  Weight: 74.8435 kg

DRUGS (2)
  1. SPIRIVA [Suspect]
     Indication: DYSPNOEA
     Dosage: 1 CAPSULE DAILY INHALED
     Route: 055
     Dates: start: 20080220, end: 20080320
  2. TIMOPTIC [Concomitant]

REACTIONS (2)
  - PRURITUS [None]
  - RASH PAPULAR [None]
